FAERS Safety Report 6146224-7 (Version None)
Quarter: 2009Q2

REPORT INFORMATION
  Report Type: 
  Country: None (occurrence: None)
  Receive Date: 20090407
  Receipt Date: 20090331
  Transmission Date: 20091009
  Serious: Yes (Other)
  Sender: FDA-Public Use
  Company Number: PHHY2008VE05510

PATIENT
  Sex: Male

DRUGS (1)
  1. ACLASTA [Suspect]
     Dosage: 5 MG

REACTIONS (4)
  - CONFUSIONAL STATE [None]
  - EUPHORIC MOOD [None]
  - INCOHERENT [None]
  - INFLUENZA LIKE ILLNESS [None]
